FAERS Safety Report 9770408 (Version 2)
Quarter: 2013Q4

REPORT INFORMATION
  Report Type: Spontaneous
  Country: KR (occurrence: KR)
  Receive Date: 20131218
  Receipt Date: 20131218
  Transmission Date: 20140711
  Serious: Yes (Other)
  Sender: FDA-Public Use
  Company Number: KR-JNJFOC-20130217283

PATIENT
  Sex: 0

DRUGS (3)
  1. INFLIXIMAB, RECOMBINANT [Suspect]
     Indication: COLITIS ULCERATIVE
     Route: 042
  2. CORTICOSTEROIDS [Concomitant]
     Route: 065
  3. IMMUNOMODULATORS [Concomitant]
     Route: 065

REACTIONS (4)
  - Opportunistic infection [Unknown]
  - Infusion related reaction [Unknown]
  - Serum sickness-like reaction [Unknown]
  - Adverse event [Unknown]
